FAERS Safety Report 9439722 (Version 1)
Quarter: 2013Q3

REPORT INFORMATION
  Report Type: Spontaneous
  Country: US (occurrence: None)
  Receive Date: 20130802
  Receipt Date: 20130802
  Transmission Date: 20140515
  Serious: Yes (Other)
  Sender: FDA-Public Use
  Company Number: None

PATIENT
  Age: 14 Year
  Sex: Female
  Weight: 49.9 kg

DRUGS (1)
  1. METHYLPHENID [Suspect]
     Indication: ATTENTION DEFICIT/HYPERACTIVITY DISORDER
     Dosage: 54 MG ONCE A DAY PO
     Route: 048
     Dates: start: 20130702, end: 20130730

REACTIONS (6)
  - Abnormal behaviour [None]
  - Crying [None]
  - Product substitution issue [None]
  - Drug ineffective [None]
  - Language disorder [None]
  - Dysarthria [None]
